FAERS Safety Report 17334180 (Version 1)
Quarter: 2020Q1

REPORT INFORMATION
  Report Type: Report from Study
  Country: None (occurrence: AU)
  Receive Date: 20200128
  Receipt Date: 20200128
  Transmission Date: 20200409
  Serious: Yes (Hospitalization)
  Sender: FDA-Public Use
  Company Number: AU-ABBVIE-20K-008-3244330-00

PATIENT
  Sex: Male

DRUGS (1)
  1. DUODOPA [Suspect]
     Active Substance: CARBIDOPA\LEVODOPA
     Indication: PARKINSON^S DISEASE
     Dosage: 24 HOUR THERAPY
     Route: 050
     Dates: start: 20190325

REACTIONS (4)
  - Extra dose administered [Unknown]
  - Behaviour disorder [Unknown]
  - Hallucination [Unknown]
  - Paranoia [Unknown]
